FAERS Safety Report 12950732 (Version 1)
Quarter: 2016Q4

REPORT INFORMATION
  Report Type: Spontaneous
  Country: US (occurrence: US)
  Receive Date: 20161117
  Receipt Date: 20161117
  Transmission Date: 20170207
  Serious: No
  Sender: FDA-Public Use
  Company Number: US-GLAXOSMITHKLINE-US2016169611

PATIENT
  Age: 56 Year
  Sex: Female

DRUGS (4)
  1. COMBIVENT [Concomitant]
     Active Substance: ALBUTEROL SULFATE\IPRATROPIUM BROMIDE
  2. FLOVENT DISKUS [Suspect]
     Active Substance: FLUTICASONE PROPIONATE
     Indication: ASTHMA
     Dosage: 1 PUFF(S), BID
     Route: 055
     Dates: start: 20161111, end: 20161113
  3. MIRAPEX [Concomitant]
     Active Substance: PRAMIPEXOLE DIHYDROCHLORIDE
  4. PANTOPRAZOLE SODIUM. [Concomitant]
     Active Substance: PANTOPRAZOLE SODIUM

REACTIONS (6)
  - Oral pain [Recovering/Resolving]
  - Gingival pain [Unknown]
  - Intentional product use issue [Unknown]
  - Drug dose omission [Unknown]
  - Hypoaesthesia oral [Recovering/Resolving]
  - Toothache [Unknown]

NARRATIVE: CASE EVENT DATE: 20161112
